FAERS Safety Report 4879289-0 (Version None)
Quarter: 2006Q1

REPORT INFORMATION
  Report Type: 
  Country: None (occurrence: None)
  Receive Date: 20060112
  Receipt Date: 20050228
  Transmission Date: 20060701
  Serious: Yes (Other)
  Sender: FDA-Public Use
  Company Number: US-MERCK-0503USA00228

PATIENT
  Age: 78 Year
  Sex: Male
  Weight: 95 kg

DRUGS (16)
  1. PROMETHAZINE [Concomitant]
     Route: 065
  2. HYDROCODONE BITARTRATE + ACETAMINOPHEN [Concomitant]
     Route: 065
  3. VIOXX [Suspect]
     Indication: ARTHRITIS
     Route: 048
     Dates: start: 20020101, end: 20040901
  4. LOTENSIN [Concomitant]
     Route: 065
  5. ALLOPURINOL [Concomitant]
     Route: 065
  6. COLCHICINE [Concomitant]
     Route: 065
  7. WARFARIN [Concomitant]
     Route: 065
  8. ASPIRIN [Concomitant]
     Route: 065
  9. PRINIVIL [Concomitant]
     Route: 048
  10. DIGITEK [Concomitant]
     Route: 065
  11. LASIX [Concomitant]
     Route: 065
  12. MAXZIDE [Concomitant]
     Route: 065
  13. LANOXIN [Concomitant]
     Route: 065
  14. TEMAZEPAM [Concomitant]
     Route: 065
  15. HYDROCHLOROTHIAZIDE AND TRIAMTERENE [Concomitant]
     Route: 065
  16. POTASSIUM CHLORIDE [Concomitant]
     Route: 065

REACTIONS (14)
  - ATRIAL TACHYCARDIA [None]
  - BRONCHITIS [None]
  - CARDIAC FAILURE CONGESTIVE [None]
  - CARDIOMEGALY [None]
  - CAROTID ARTERY DISEASE [None]
  - EFFUSION [None]
  - EMOTIONAL DISTRESS [None]
  - GOUT [None]
  - HYPERTENSION [None]
  - MYOCARDIAL INFARCTION [None]
  - PALPITATIONS [None]
  - RENAL FAILURE [None]
  - SUPRAVENTRICULAR TACHYCARDIA [None]
  - TRANSIENT ISCHAEMIC ATTACK [None]
